FAERS Safety Report 8446394-1 (Version None)
Quarter: 2012Q2

REPORT INFORMATION
  Report Type: 
  Country: None (occurrence: None)
  Receive Date: 20120618
  Receipt Date: 20120607
  Transmission Date: 20120825
  Serious: Yes (Death)
  Sender: FDA-Public Use
  Company Number: JP-GILEAD-2012-0054072

PATIENT
  Sex: Male

DRUGS (16)
  1. PREDNISOLONE [Concomitant]
     Indication: IDIOPATHIC PULMONARY FIBROSIS
     Route: 065
  2. REVATIO [Concomitant]
     Indication: PULMONARY HYPERTENSION
     Route: 048
     Dates: start: 20100528
  3. EPINASTINE HYDROCHLORIDE [Concomitant]
     Indication: RHINITIS ALLERGIC
     Route: 048
  4. COTRIM [Concomitant]
     Route: 048
  5. PIRFENIDONE [Concomitant]
     Indication: IDIOPATHIC PULMONARY FIBROSIS
     Route: 048
  6. INTAL [Concomitant]
     Indication: RHINITIS ALLERGIC
     Route: 045
  7. INTAL [Concomitant]
     Route: 045
  8. FUROSEMIDE [Concomitant]
     Indication: PULMONARY OEDEMA
     Route: 065
  9. FUROSEMIDE [Concomitant]
     Route: 065
  10. EPINASTINE HYDROCHLORIDE [Concomitant]
     Route: 048
  11. OXYGEN [Concomitant]
  12. COTRIM [Concomitant]
     Indication: ANTIFUNGAL PROPHYLAXIS
     Route: 048
  13. AMBRISENTAN [Suspect]
     Indication: PULMONARY ARTERIAL HYPERTENSION
     Dosage: 2.5 MG, QD
     Route: 048
     Dates: start: 20101022, end: 20101106
  14. PREDNISOLONE [Concomitant]
     Route: 065
  15. PIRFENIDONE [Concomitant]
     Route: 048
  16. PRIVINA                            /00419603/ [Concomitant]
     Indication: RHINITIS ALLERGIC
     Route: 045

REACTIONS (1)
  - RESPIRATORY FAILURE [None]
